FAERS Safety Report 9210674 (Version 1)
Quarter: 2013Q2

REPORT INFORMATION
  Report Type: Report from Study
  Country: DE (occurrence: DE)
  Receive Date: 20130404
  Receipt Date: 20130404
  Transmission Date: 20140414
  Serious: Yes (Death, Hospitalization, Other)
  Sender: FDA-Public Use
  Company Number: DE-BAYER-2013-042403

PATIENT
  Sex: 0

DRUGS (3)
  1. STUDY MED NOT GIVEN (15967) [Suspect]
     Indication: FEBRILE NEUTROPENIA
  2. CIPROFLOXACIN [Suspect]
     Indication: FEBRILE NEUTROPENIA
  3. AMOXICILLINE + CLAVULANIC ACID [Suspect]
     Indication: FEBRILE NEUTROPENIA

REACTIONS (2)
  - Septic shock [Fatal]
  - Drug ineffective [None]
